FAERS Safety Report 15848469 (Version 1)
Quarter: 2019Q1

REPORT INFORMATION
  Report Type: Spontaneous
  Country: ES (occurrence: ES)
  Receive Date: 20190121
  Receipt Date: 20190121
  Transmission Date: 20190417
  Serious: Yes (Other)
  Sender: FDA-Public Use
  Company Number: ES-BAYER-2019-013194

PATIENT
  Age: 77 Year
  Sex: Male

DRUGS (3)
  1. ASPIRIN. [Suspect]
     Active Substance: ASPIRIN
     Indication: ARTERIAL DISORDER
     Dosage: 100 MG, QD
  2. SIMVASTATIN. [Concomitant]
     Active Substance: SIMVASTATIN
  3. CILOSTAZOL. [Concomitant]
     Active Substance: CILOSTAZOL
     Dosage: 100 MG, BID

REACTIONS (8)
  - Groin pain [Recovering/Resolving]
  - Thrombocytopenia [None]
  - Haematoma [Recovered/Resolved]
  - Peripheral artery aneurysm [Recovering/Resolving]
  - Peripheral vascular disorder [Recovering/Resolving]
  - Coeliac artery aneurysm [Recovering/Resolving]
  - Femoral artery aneurysm [Recovered/Resolved]
  - Peripheral artery thrombosis [Recovering/Resolving]
